FAERS Safety Report 23439177 (Version 2)
Quarter: 2024Q1

REPORT INFORMATION
  Report Type: Other
  Country: US (occurrence: None)
  Receive Date: 20240124
  Receipt Date: 20240125
  Transmission Date: 20240410
  Serious: No
  Sender: FDA-Public Use
  Company Number: US-ROCHE-3496630

PATIENT
  Age: 79 Year
  Sex: Male
  Weight: 73.548 kg

DRUGS (3)
  1. OCREVUS [Suspect]
     Active Substance: OCRELIZUMAB
     Indication: Primary progressive multiple sclerosis
     Dosage: (PRESCRIBED AS 300 MG EVERY 2 WEEK THEN 600 MG EVERY 6 MONTH) DATE OF TREATMENT:  08/JUL/2022,  05/J
     Route: 042
     Dates: start: 2022
  2. ATORVASTATIN [Concomitant]
     Active Substance: ATORVASTATIN
     Route: 048
     Dates: start: 2017
  3. ASPIRIN [Concomitant]
     Active Substance: ASPIRIN
     Indication: Cerebrovascular accident
     Route: 048
     Dates: start: 2017

REACTIONS (4)
  - COVID-19 [Not Recovered/Not Resolved]
  - Fall [Unknown]
  - Skin laceration [Recovering/Resolving]
  - Muscular weakness [Unknown]

NARRATIVE: CASE EVENT DATE: 20240118
